FAERS Safety Report 8489034-8 (Version None)
Quarter: 2012Q3

REPORT INFORMATION
  Report Type: 
  Country: None (occurrence: None)
  Receive Date: 20120705
  Receipt Date: 20120702
  Transmission Date: 20120928
  Serious: No
  Sender: FDA-Public Use
  Company Number: US-PFIZER INC-2012158772

PATIENT
  Sex: Female

DRUGS (7)
  1. LIDOCAINE HYDROCHLORIDE [Suspect]
     Dosage: UNK
  2. ASPIRIN [Suspect]
     Dosage: UNK
  3. MULTAQ [Suspect]
     Dosage: UNK
  4. DEMEROL [Suspect]
     Dosage: UNK
  5. AMBIEN [Suspect]
     Dosage: UNK
  6. LANOXIN [Suspect]
     Dosage: UNK
  7. HEPARIN SODIUM [Suspect]
     Dosage: UNK

REACTIONS (1)
  - DRUG HYPERSENSITIVITY [None]
